FAERS Safety Report 15573722 (Version 1)
Quarter: 2018Q4

REPORT INFORMATION
  Report Type: Spontaneous
  Country: EG (occurrence: EG)
  Receive Date: 20181101
  Receipt Date: 20181101
  Transmission Date: 20190205
  Serious: Yes (Hospitalization, Other)
  Sender: FDA-Public Use
  Company Number: EG-HIKMA PHARMACEUTICALS USA INC.-EG-H14001-18-08091

PATIENT
  Age: 42 Year
  Sex: Female
  Weight: 100 kg

DRUGS (2)
  1. TAXOL [Concomitant]
     Active Substance: PACLITAXEL
     Indication: OVARIAN CANCER
     Route: 065
  2. CARBOTINOL [Suspect]
     Active Substance: CARBOPLATIN
     Indication: OVARIAN CANCER
     Route: 042

REACTIONS (4)
  - Cyanosis central [Unknown]
  - Agitation [Unknown]
  - Dyspnoea [Unknown]
  - Cyanosis [Unknown]
